FAERS Safety Report 6693831-9 (Version None)
Quarter: 2010Q2

REPORT INFORMATION
  Report Type: 
  Country: None (occurrence: None)
  Receive Date: 20100423
  Receipt Date: 20100412
  Transmission Date: 20101027
  Serious: Yes (Other)
  Sender: FDA-Public Use
  Company Number: CA-JNJFOC-20100404131

PATIENT
  Sex: Female
  Weight: 55.4 kg

DRUGS (4)
  1. REMICADE [Suspect]
     Indication: CROHN'S DISEASE
     Route: 042
  2. IMURAN [Concomitant]
     Route: 048
  3. VITAMIN B-12 [Concomitant]
  4. CIPRALEX [Concomitant]

REACTIONS (8)
  - CHEST DISCOMFORT [None]
  - DIZZINESS [None]
  - FATIGUE [None]
  - INFECTION [None]
  - LYMPHADENOPATHY [None]
  - NIGHT SWEATS [None]
  - TONSILLAR HAEMORRHAGE [None]
  - TONSILLAR HYPERTROPHY [None]
